FAERS Safety Report 5557466-3 (Version None)
Quarter: 2007Q4

REPORT INFORMATION
  Report Type: 
  Country: None (occurrence: None)
  Receive Date: 20071214
  Receipt Date: 20071204
  Transmission Date: 20080405
  Serious: Yes (Hospitalization)
  Sender: FDA-Public Use
  Company Number: JP-JNJFOC-20071103048

PATIENT
  Sex: Male
  Weight: 15 kg

DRUGS (14)
  1. RISPERDAL [Suspect]
     Route: 048
  2. RISPERDAL [Suspect]
     Route: 048
  3. RISPERDAL [Suspect]
     Route: 048
  4. RISPERDAL [Suspect]
     Route: 048
  5. RISPERDAL [Suspect]
     Route: 048
  6. RISPERDAL [Suspect]
     Route: 048
  7. RISPERDAL [Suspect]
     Route: 048
  8. RISPERDAL [Suspect]
     Route: 048
  9. RISPERDAL [Suspect]
     Indication: IMPULSIVE BEHAVIOUR
     Route: 048
  10. RISPERDAL [Suspect]
     Indication: HYPERKINESIA
     Route: 048
  11. ZONISAMIDE [Concomitant]
     Route: 048
  12. ZONISAMIDE [Concomitant]
     Indication: EPILEPSY
     Route: 048
  13. VALPROATE SODIUM [Concomitant]
     Indication: EPILEPSY
     Route: 048
  14. CLONAZEPAM [Concomitant]
     Indication: EPILEPSY
     Route: 048

REACTIONS (8)
  - ACCIDENTAL OVERDOSE [None]
  - ATAXIA [None]
  - DYSKINESIA [None]
  - EPILEPSY [None]
  - GAIT DISTURBANCE [None]
  - MEDICATION ERROR [None]
  - SOMNOLENCE [None]
  - TREMOR [None]
